FAERS Safety Report 10147201 (Version 2)
Quarter: 2014Q2

REPORT INFORMATION
  Report Type: Spontaneous
  Country: DK (occurrence: DK)
  Receive Date: 20140501
  Receipt Date: 20140507
  Transmission Date: 20141212
  Serious: Yes (Other)
  Sender: FDA-Public Use
  Company Number: DK-JHP PHARMACEUTICALS, LLC-JHP201400268

PATIENT
  Age: 67 Year
  Sex: Male

DRUGS (4)
  1. ADRENALIN CHLORIDE SOLUTION [Suspect]
     Indication: OEDEMA MUCOSAL
     Dosage: TOPICAL ONTO NASAL MUCOSA - 3.2 MG
     Route: 061
  2. COCAINE [Suspect]
     Indication: OEDEMA MUCOSAL
     Dosage: TOPICAL ONTO NASAL MUCOSA - 320 MG
     Route: 061
  3. ANAESTHETICS [Concomitant]
     Indication: ANAESTHESIA PROCEDURE
  4. MAGNESIUM [Concomitant]
     Indication: MUSCLE SPASMS

REACTIONS (1)
  - Stress cardiomyopathy [Recovered/Resolved]
